FAERS Safety Report 21264328 (Version 1)
Quarter: 2022Q3

REPORT INFORMATION
  Report Type: Spontaneous
  Country: US (occurrence: US)
  Receive Date: 20220829
  Receipt Date: 20220829
  Transmission Date: 20221027
  Serious: Yes (Other)
  Sender: FDA-Public Use
  Company Number: US-20220815-803695211

PATIENT
  Age: 3 Decade
  Sex: Male

DRUGS (12)
  1. CLOZAPINE [Suspect]
     Active Substance: CLOZAPINE
     Indication: Schizophrenia
     Dosage: 25 MILLIGRAM
     Route: 065
  2. CLOZAPINE [Suspect]
     Active Substance: CLOZAPINE
     Dosage: 50 MILLIGRAM
     Route: 065
  3. CLOZAPINE [Suspect]
     Active Substance: CLOZAPINE
     Dosage: 75 MILLIGRAM
     Route: 065
  4. CLOZAPINE [Suspect]
     Active Substance: CLOZAPINE
     Dosage: 100 MILLIGRAM
     Route: 065
  5. CLOZAPINE [Suspect]
     Active Substance: CLOZAPINE
     Dosage: 150 MILLIGRAM
     Route: 065
  6. RISPERIDONE [Suspect]
     Active Substance: RISPERIDONE
     Indication: Aggression
     Dosage: 0.5 MILLIGRAM, TWO TIMES A DAY
     Route: 065
  7. RISPERIDONE [Suspect]
     Active Substance: RISPERIDONE
     Dosage: 4 MILLIGRAM
     Route: 065
  8. QUETIAPINE [Suspect]
     Active Substance: QUETIAPINE
     Indication: Schizophrenia
     Dosage: 800 MILLIGRAM
     Route: 065
  9. ESCITALOPRAM [Concomitant]
     Active Substance: ESCITALOPRAM OXALATE
     Indication: Depression
     Dosage: UNK
     Route: 065
  10. LEVOTHYROXINE [Concomitant]
     Active Substance: LEVOTHYROXINE
     Indication: Hypothyroidism
     Dosage: UNK
     Route: 065
  11. LORAZEPAM [Concomitant]
     Active Substance: LORAZEPAM
     Indication: Product used for unknown indication
     Dosage: UNK
     Route: 065
  12. OLANZAPINE [Concomitant]
     Active Substance: OLANZAPINE
     Indication: Psychotic symptom
     Dosage: UNK
     Route: 065

REACTIONS (3)
  - Myocarditis [Unknown]
  - Catatonia [Recovered/Resolved]
  - Drug ineffective [Unknown]
